FAERS Safety Report 6431567-X (Version None)
Quarter: 2009Q4

REPORT INFORMATION
  Report Type: 
  Country: None (occurrence: None)
  Receive Date: 20091103
  Receipt Date: 20091024
  Transmission Date: 20100525
  Serious: Yes (Other)
  Sender: FDA-Public Use
  Company Number: 2009SP032562

PATIENT
  Age: 55 Year
  Sex: Female
  Weight: 99 kg

DRUGS (2)
  1. PEGINTRON ALFA-2B (S-P) (PEGINTERFERON ALFA-2B) [Suspect]
     Indication: HEPATITIS C
     Dosage: 150 MCG;QW;SC; 120 MCG;QW;SC
     Route: 058
  2. RIBAVIRIN [Suspect]
     Indication: HEPATITIS C
     Dosage: 1200 MG;QD; 1000 MG; QD

REACTIONS (7)
  - DIZZINESS [None]
  - DYSPNOEA [None]
  - HAEMOGLOBIN DECREASED [None]
  - PALPITATIONS [None]
  - SINUS TACHYCARDIA [None]
  - SYNCOPE [None]
  - VENTRICULAR EXTRASYSTOLES [None]
